FAERS Safety Report 21311718 (Version 1)
Quarter: 2022Q3

REPORT INFORMATION
  Report Type: Spontaneous
  Country: US (occurrence: None)
  Receive Date: 20220909
  Receipt Date: 20220909
  Transmission Date: 20221026
  Serious: No
  Sender: FDA-Public Use
  Company Number: US-ARIS GLOBAL-202203-0388

PATIENT
  Age: 29 Year
  Sex: Male

DRUGS (7)
  1. OXERVATE [Suspect]
     Active Substance: CENEGERMIN-BKBJ
     Indication: Neurotrophic keratopathy
     Route: 047
     Dates: start: 20220223, end: 20220420
  2. OXERVATE [Suspect]
     Active Substance: CENEGERMIN-BKBJ
     Route: 047
     Dates: start: 20220422
  3. GENTEAL TEARS [Concomitant]
     Active Substance: DEXTRAN 70\HYPROMELLOSE 2910 (4000 MPA.S)
     Dosage: 0.1%-0.3%
  4. HUMALOG [Concomitant]
     Active Substance: INSULIN LISPRO
     Dosage: 100/ML VIAL
  5. NOVOLOG [Concomitant]
     Active Substance: INSULIN ASPART
     Dosage: 100/ML VIAL
  6. FLUOROMETHOLONE [Concomitant]
     Active Substance: FLUOROMETHOLONE
  7. VALTREX [Concomitant]
     Active Substance: VALACYCLOVIR HYDROCHLORIDE

REACTIONS (5)
  - Ocular hyperaemia [Unknown]
  - Eye pruritus [Unknown]
  - Eye pain [Unknown]
  - Photophobia [Unknown]
  - Malaise [Unknown]

NARRATIVE: CASE EVENT DATE: 20220226
